FAERS Safety Report 26078293 (Version 1)
Quarter: 2025Q4

REPORT INFORMATION
  Report Type: Spontaneous
  Country: EU (occurrence: EU)
  Receive Date: 20251122
  Receipt Date: 20251122
  Transmission Date: 20260117
  Serious: Yes (Hospitalization)
  Sender: TEVA
  Company Number: None

PATIENT
  Age: 31 Year
  Sex: Male
  Weight: 72 kg

DRUGS (4)
  1. CLARITHROMYCIN [Suspect]
     Active Substance: CLARITHROMYCIN
     Indication: Helicobacter infection
     Dosage: 1 PIECE TWICE A DAY; BRAND NAME NOT SPECIFIED
     Route: 048
     Dates: start: 20250813
  2. ESOMEPRAZOLE [Suspect]
     Active Substance: ESOMEPRAZOLE
     Indication: Helicobacter infection
     Dosage: 1 PIECE TWICE A DAY; CAPSULE MSR / BRAND NAME NOT SPECIFIED
     Route: 048
     Dates: start: 20250813
  3. NAPROXEN [Concomitant]
     Active Substance: NAPROXEN
     Indication: Product used for unknown indication
     Dosage: BRAND NAME NOT SPECIFIED
     Route: 048
  4. AMOXICILLIN [Suspect]
     Active Substance: AMOXICILLIN
     Indication: Helicobacter infection
     Dosage: 1 PIECE TWICE A DAY; BRAND NAME NOT SPECIFIED
     Route: 048
     Dates: start: 20250813

REACTIONS (1)
  - Clostridial infection [Not Recovered/Not Resolved]
